FAERS Safety Report 5869663-8 (Version None)
Quarter: 2008Q3

REPORT INFORMATION
  Report Type: 
  Country: None (occurrence: None)
  Receive Date: 20080828
  Receipt Date: 20080820
  Transmission Date: 20090109
  Serious: Yes (Hospitalization)
  Sender: FDA-Public Use
  Company Number: TCI2008A03397

PATIENT
  Age: 55 Year
  Sex: Female

DRUGS (12)
  1. ACTOS [Suspect]
     Indication: TYPE 2 DIABETES MELLITUS
     Dosage: 15 MG (15 MG, 1 IN 1 D) PER ORAL
     Route: 048
     Dates: end: 20080601
  2. BASEN OD TABLETS 0.3 (VOGLIBOSE) [Concomitant]
  3. 2MG CERCINE TABLETS (DIAZEPAM) [Concomitant]
  4. NOVORAPID (INSULIN ASPART) [Concomitant]
  5. NOVORAPID MIX (INSULIN ASPART) [Concomitant]
  6. DIOVAN [Concomitant]
  7. BISOPROLOL FUMARATE [Concomitant]
  8. LOXONIN (LOXOPROFEN SODIUM) [Concomitant]
  9. KAKKON-TO (HERBAL EXTRACT NOS) [Concomitant]
  10. RHYTHMY (RILMAZAFONE) [Concomitant]
  11. NOVOLIN R [Concomitant]
  12. NOVOLIN N [Concomitant]

REACTIONS (8)
  - ACUTE PULMONARY OEDEMA [None]
  - ATRIAL FIBRILLATION [None]
  - BLOOD PRESSURE INCREASED [None]
  - BRAIN NATRIURETIC PEPTIDE INCREASED [None]
  - CHEST DISCOMFORT [None]
  - DYSPNOEA [None]
  - GLYCOSYLATED HAEMOGLOBIN INCREASED [None]
  - OXYGEN SATURATION DECREASED [None]
